FAERS Safety Report 22197506 (Version 1)
Quarter: 2023Q2

REPORT INFORMATION
  Report Type: Spontaneous
  Country: US (occurrence: None)
  Receive Date: 20230411
  Receipt Date: 20230411
  Transmission Date: 20230721
  Serious: Yes (Other)
  Sender: FDA-Public Use
  Company Number: None

PATIENT
  Age: 69 Year
  Sex: Female
  Weight: 53.1 kg

DRUGS (8)
  1. HYDROCODONE BITARTRATE AND ACETAMINOPHEN [Suspect]
     Active Substance: ACETAMINOPHEN\HYDROCODONE BITARTRATE
     Indication: Neck pain
     Dosage: FREQUENCY : EVERY 6 HOURS;?
     Route: 048
     Dates: start: 20230407, end: 20230407
  2. HYDROCODONE BITARTRATE AND ACETAMINOPHEN [Suspect]
     Active Substance: ACETAMINOPHEN\HYDROCODONE BITARTRATE
     Indication: Back pain
  3. LISINOPRIL [Concomitant]
     Active Substance: LISINOPRIL
  4. PROLIA [Concomitant]
     Active Substance: DENOSUMAB
  5. ROSUVASTATIN [Concomitant]
     Active Substance: ROSUVASTATIN
  6. CALCIUM [Concomitant]
     Active Substance: CALCIUM
  7. HYDROCODONE [Concomitant]
     Active Substance: HYDROCODONE
  8. CALCIUM WITH D3 [Concomitant]

REACTIONS (4)
  - Nausea [None]
  - Fluid intake reduced [None]
  - Impaired work ability [None]
  - Product substitution issue [None]

NARRATIVE: CASE EVENT DATE: 20230407
